FAERS Safety Report 5559948-7 (Version None)
Quarter: 2007Q4

REPORT INFORMATION
  Report Type: 
  Country: None (occurrence: None)
  Receive Date: 20071214
  Receipt Date: 20071016
  Transmission Date: 20080405
  Serious: No
  Sender: FDA-Public Use
  Company Number: US-ABBOTT-07P-163-0421440-00

PATIENT
  Sex: Female

DRUGS (2)
  1. HUMIRA [Suspect]
     Indication: PSORIATIC ARTHROPATHY
     Dates: end: 20070801
  2. HUMIRA [Suspect]

REACTIONS (7)
  - ANXIETY [None]
  - DEPRESSION [None]
  - FUNGAL INFECTION [None]
  - PRURITUS [None]
  - SINUSITIS [None]
  - THYROID DISORDER [None]
  - UNDERDOSE [None]
